FAERS Safety Report 18657852 (Version 1)
Quarter: 2020Q4

REPORT INFORMATION
  Report Type: Report from Study
  Country: CA (occurrence: CA)
  Receive Date: 20201223
  Receipt Date: 20201223
  Transmission Date: 20210114
  Serious: Yes (Other)
  Sender: FDA-Public Use
  Company Number: CA-ASTRAZENECA-2020SF21088

PATIENT
  Sex: Female

DRUGS (2)
  1. GILOTRIF [Concomitant]
     Active Substance: AFATINIB
  2. TAGRISSO [Suspect]
     Active Substance: OSIMERTINIB
     Indication: NON-SMALL CELL LUNG CANCER
     Dosage: UNKNOWN
     Route: 048
     Dates: start: 20190106, end: 2020

REACTIONS (1)
  - Malignant neoplasm progression [Unknown]
